FAERS Safety Report 16903202 (Version 2)
Quarter: 2019Q4

REPORT INFORMATION
  Report Type: Spontaneous
  Country: AU (occurrence: AU)
  Receive Date: 20191010
  Receipt Date: 20191219
  Transmission Date: 20200122
  Serious: Yes (Other)
  Sender: FDA-Public Use
  Company Number: AU-SUNOVION-2019DSP012467

PATIENT
  Age: 37 Year
  Sex: Female

DRUGS (10)
  1. LATUDA [Suspect]
     Active Substance: LURASIDONE HYDROCHLORIDE
     Indication: SCHIZOPHRENIA
     Dosage: UNK
     Route: 065
  2. OLANZAPINE. [Suspect]
     Active Substance: OLANZAPINE
     Dosage: UNK
     Route: 065
  3. SODIUM VALPROATE UNKNOWN FORMULATION [Suspect]
     Active Substance: VALPROATE SODIUM
     Dosage: UNK
     Route: 065
  4. RISPERIDONE. [Suspect]
     Active Substance: RISPERIDONE
     Dosage: UNK
     Route: 065
  5. CLOZAPINE. [Suspect]
     Active Substance: CLOZAPINE
     Dosage: UNK
     Route: 065
  6. QUETIAPINE. [Suspect]
     Active Substance: QUETIAPINE
     Dosage: UNK
     Route: 065
  7. CLOMIPRAMINE HYDROCHLORIDE. [Suspect]
     Active Substance: CLOMIPRAMINE HYDROCHLORIDE
     Dosage: UNK
     Route: 065
  8. ARIPIPRAZOLE. [Suspect]
     Active Substance: ARIPIPRAZOLE
     Dosage: UNK
     Route: 065
  9. CLONAZEPAM UNKNOWN FORMULATION [Suspect]
     Active Substance: CLONAZEPAM
     Dosage: UNK
     Route: 065
  10. SODIUM VALPROATE UNKNOWN FORMULATION [Suspect]
     Active Substance: VALPROATE SODIUM
     Dosage: UNK
     Route: 065

REACTIONS (3)
  - Neutropenia [Unknown]
  - Leukopenia [Unknown]
  - Epilepsy [Unknown]
